FAERS Safety Report 23285236 (Version 1)
Quarter: 2023Q4

REPORT INFORMATION
  Report Type: Spontaneous
  Country: US (occurrence: None)
  Receive Date: 20231211
  Receipt Date: 20231211
  Transmission Date: 20240110
  Serious: No
  Sender: FDA-Public Use
  Company Number: 2023A279491

PATIENT
  Age: 30 Year
  Sex: Female

DRUGS (1)
  1. NEXIUM [Suspect]
     Active Substance: ESOMEPRAZOLE MAGNESIUM
     Indication: Dyspepsia
     Dosage: UNK
     Dates: start: 20231115

REACTIONS (3)
  - Diarrhoea [Unknown]
  - Faeces discoloured [Unknown]
  - Vomiting [Unknown]

NARRATIVE: CASE EVENT DATE: 20231128
